FAERS Safety Report 4507199-7 (Version None)
Quarter: 2004Q4

REPORT INFORMATION
  Report Type: 
  Country: None (occurrence: None)
  Receive Date: 20041025
  Receipt Date: 20040520
  Transmission Date: 20050328
  Serious: Yes (Other)
  Sender: FDA-Public Use
  Company Number: US-JNJFOC-20040505129

PATIENT
  Age: 61 Year
  Sex: Female
  Weight: 117.9352 kg

DRUGS (14)
  1. INFLIXIMAB (INFLIXIMAB , RECOMBINANT) LYOPHILIZED POWDER [Suspect]
     Indication: RHEUMATOID ARTHRITIS
     Dosage: INTRAVENOUS
     Route: 042
     Dates: start: 20010908
  2. CELEBREX [Concomitant]
  3. ARAVA [Concomitant]
  4. PREDNISONE [Concomitant]
  5. GLUCOTROL [Concomitant]
  6. ACTOS [Concomitant]
  7. PRANDIN (ALL OTHER THERAPEUTIC PRODUCTS) [Concomitant]
  8. TENORMIN [Concomitant]
  9. SYNTHROID [Concomitant]
  10. PREMARIN [Concomitant]
  11. LASIX [Concomitant]
  12. ADALAT [Concomitant]
  13. COZAAR [Concomitant]
  14. MULTIVITAMIN [Concomitant]

REACTIONS (1)
  - PARAESTHESIA [None]
